FAERS Safety Report 5001959-4 (Version None)
Quarter: 2006Q2

REPORT INFORMATION
  Report Type: 
  Country: None (occurrence: None)
  Receive Date: 20060515
  Receipt Date: 20060502
  Transmission Date: 20061013
  Serious: Yes (Hospitalization)
  Sender: FDA-Public Use
  Company Number: US-ROCHE-446401

PATIENT
  Age: 40 Year
  Sex: Male
  Weight: 91.6 kg

DRUGS (3)
  1. CAPECITABINE [Suspect]
     Indication: PANCREATIC CARCINOMA
     Dosage: PER STUDY PROTOCOL PER 2 WEEK CYCLE
     Route: 048
     Dates: start: 20060227
  2. AVASTIN [Suspect]
     Indication: PANCREATIC CARCINOMA
     Route: 042
     Dates: start: 20060227
  3. GEMCITABINE [Suspect]
     Indication: PANCREATIC CARCINOMA
     Route: 042
     Dates: start: 20060227

REACTIONS (5)
  - ABDOMINAL PAIN [None]
  - ANOREXIA [None]
  - BILE DUCT STENOSIS [None]
  - COLITIS [None]
  - VOMITING [None]
